FAERS Safety Report 8396532-4 (Version None)
Quarter: 2012Q2

REPORT INFORMATION
  Report Type: 
  Country: None (occurrence: None)
  Receive Date: 20120530
  Receipt Date: 20120521
  Transmission Date: 20120825
  Serious: No
  Sender: FDA-Public Use
  Company Number: US-BAYER-2012-047968

PATIENT
  Sex: Male

DRUGS (3)
  1. GADAVIST [Suspect]
  2. GADAVIST [Suspect]
  3. GADAVIST [Suspect]
     Indication: NUCLEAR MAGNETIC RESONANCE IMAGING

REACTIONS (2)
  - VOMITING [None]
  - NAUSEA [None]
